FAERS Safety Report 12926511 (Version 2)
Quarter: 2016Q4

REPORT INFORMATION
  Report Type: Spontaneous
  Country: US (occurrence: US)
  Receive Date: 20161109
  Receipt Date: 20161109
  Transmission Date: 20170207
  Serious: Yes (Hospitalization, Other)
  Sender: FDA-Public Use
  Company Number: US-ELI_LILLY_AND_COMPANY-US201611000202

PATIENT
  Age: 76 Year
  Sex: Male

DRUGS (17)
  1. BUMETANIDE. [Concomitant]
     Active Substance: BUMETANIDE
  2. ATORVASTATIN [Concomitant]
     Active Substance: ATORVASTATIN
  3. OMEPRAZOLE. [Concomitant]
     Active Substance: OMEPRAZOLE
  4. ADCIRCA [Suspect]
     Active Substance: TADALAFIL
     Indication: PRODUCT USED FOR UNKNOWN INDICATION
     Dosage: UNK UNK, UNKNOWN
     Route: 065
  5. LETAIRIS [Suspect]
     Active Substance: AMBRISENTAN
     Indication: PULMONARY ARTERIAL HYPERTENSION
     Dosage: 5 MG, QD
     Route: 065
     Dates: start: 20151109
  6. PAROXETINE. [Concomitant]
     Active Substance: PAROXETINE
  7. SYNTHROID [Concomitant]
     Active Substance: LEVOTHYROXINE SODIUM
  8. TYVASO [Suspect]
     Active Substance: TREPROSTINIL
     Dosage: 3 BREATHS, QID
     Route: 055
     Dates: start: 20161013
  9. DIGOXIN. [Concomitant]
     Active Substance: DIGOXIN
  10. JANUMET [Concomitant]
     Active Substance: METFORMIN HYDROCHLORIDE\SITAGLIPTIN PHOSPHATE
  11. DILTIAZEM. [Concomitant]
     Active Substance: DILTIAZEM
  12. VICODIN [Concomitant]
     Active Substance: ACETAMINOPHEN\HYDROCODONE BITARTRATE
  13. TYVASO [Suspect]
     Active Substance: TREPROSTINIL
     Indication: PULMONARY ARTERIAL HYPERTENSION
     Dosage: 6 BREATHS, QID
     Route: 055
     Dates: start: 20160831
  14. PREDNISONE. [Concomitant]
     Active Substance: PREDNISONE
  15. TAMSULOSIN [Concomitant]
     Active Substance: TAMSULOSIN
  16. XANAX [Concomitant]
     Active Substance: ALPRAZOLAM
  17. SINGULAIR [Concomitant]
     Active Substance: MONTELUKAST SODIUM

REACTIONS (4)
  - Fluid retention [Unknown]
  - Dyspnoea [Unknown]
  - Oxygen saturation decreased [Unknown]
  - Cardiac failure congestive [Unknown]

NARRATIVE: CASE EVENT DATE: 20161007
